FAERS Safety Report 5782460-7 (Version None)
Quarter: 2008Q2

REPORT INFORMATION
  Report Type: 
  Country: None (occurrence: None)
  Receive Date: 20080623
  Receipt Date: 20080618
  Transmission Date: 20081010
  Serious: Yes (Death)
  Sender: FDA-Public Use
  Company Number: PHHY2008RU11387

PATIENT
  Age: 26 Year
  Sex: Male

DRUGS (2)
  1. CLOZAPINE [Suspect]
     Dosage: UNK
  2. ALCOHOL [Interacting]
     Dosage: UNK

REACTIONS (3)
  - ALCOHOL USE [None]
  - POISONING [None]
  - POISONING DELIBERATE [None]
